FAERS Safety Report 12205792 (Version 3)
Quarter: 2016Q2

REPORT INFORMATION
  Report Type: Spontaneous
  Country: GH (occurrence: GH)
  Receive Date: 20160323
  Receipt Date: 20160505
  Transmission Date: 20160815
  Serious: Yes (Death)
  Sender: FDA-Public Use
  Company Number: GH-PFIZER INC-2016169008

PATIENT
  Age: 68 Year
  Sex: Female

DRUGS (6)
  1. LYRICA [Suspect]
     Active Substance: PREGABALIN
     Indication: ARTHRALGIA
     Dosage: 75 MG, 1X/DAY
     Route: 048
     Dates: start: 20160317, end: 20160318
  2. DICLOFENAC [Concomitant]
     Active Substance: DICLOFENAC
     Dosage: 100 MG, BD (2X/DAY)
     Dates: start: 20160318
  3. LACTULOSE. [Concomitant]
     Active Substance: LACTULOSE
     Dosage: 15 ML, TDS (3X/DAY)
     Dates: start: 20160317, end: 20160318
  4. METFORMIN [Concomitant]
     Active Substance: METFORMIN HYDROCHLORIDE
     Dosage: 500 MG, BD (2X/DAY)
     Dates: start: 20160317, end: 20160318
  5. ATACAND [Concomitant]
     Active Substance: CANDESARTAN CILEXETIL
     Dosage: 1 DF (TAB) 16/12.5, DAILY
     Dates: start: 20160317, end: 20160318
  6. DICLOFENAC [Concomitant]
     Active Substance: DICLOFENAC
     Dosage: UNK
     Dates: start: 20160317

REACTIONS (3)
  - Asthenia [Fatal]
  - Rash pruritic [Recovered/Resolved]
  - Urticaria [Fatal]

NARRATIVE: CASE EVENT DATE: 20160318
